FAERS Safety Report 10047684 (Version 4)
Quarter: 2014Q3

REPORT INFORMATION
  Report Type: Spontaneous
  Country: IT (occurrence: IT)
  Receive Date: 20140331
  Receipt Date: 20140930
  Transmission Date: 20150326
  Serious: Yes (Hospitalization)
  Sender: FDA-Public Use
  Company Number: IT-OTSUKA-EU-2014-10105

PATIENT

DRUGS (9)
  1. CARDIOASPIRIN [Concomitant]
     Active Substance: ASPIRIN
     Dosage: UNK, UNKNOWN
     Route: 065
  2. DIURESIX [Concomitant]
     Active Substance: TORSEMIDE
     Dosage: UNK, UNKNOWN
     Route: 065
  3. PLETAL [Suspect]
     Active Substance: CILOSTAZOL
     Indication: GAIT DISTURBANCE
     Dosage: 100 MG MILLIGRAM(S), DAILY DOSE
     Route: 048
     Dates: start: 20140210, end: 20140311
  4. SIMVASTATIN. [Concomitant]
     Active Substance: SIMVASTATIN
     Dosage: UNK, UNKNOWN
     Route: 065
  5. METFORMIN [Concomitant]
     Active Substance: METFORMIN HYDROCHLORIDE
     Dosage: UNK, UNKNOWN
     Route: 065
  6. GLIBOMET [Concomitant]
     Active Substance: GLYBURIDE\METFORMIN HYDROCHLORIDE
     Dosage: UNK, UNKNOWN
     Route: 065
  7. RAMIPRIL. [Concomitant]
     Active Substance: RAMIPRIL
     Dosage: UNK, UNKNOWN
     Route: 065
  8. AMLODIPINE [Concomitant]
     Active Substance: AMLODIPINE BESYLATE
     Dosage: UNK, UNKNOWN
     Route: 065
  9. TAMSULOSIN HYDROCHLORIDE. [Concomitant]
     Active Substance: TAMSULOSIN HYDROCHLORIDE
     Dosage: UNK, UNKNOWN
     Route: 065

REACTIONS (5)
  - Off label use [Unknown]
  - Underdose [Unknown]
  - Dermatitis exfoliative [Recovered/Resolved]
  - Scrotal oedema [Recovered/Resolved]
  - Skin exfoliation [Recovered/Resolved]

NARRATIVE: CASE EVENT DATE: 20140210
